FAERS Safety Report 11078062 (Version 1)
Quarter: 2015Q2

REPORT INFORMATION
  Report Type: Spontaneous
  Country: None (occurrence: None)
  Receive Date: 20150429
  Receipt Date: 20150429
  Transmission Date: 20150821
  Serious: Yes (Disabling)
  Sender: FDA-Public Use
  Company Number: None

PATIENT
  Age: 56 Year
  Sex: Female
  Weight: 52.16 kg

DRUGS (1)
  1. BOTOX [Suspect]
     Active Substance: ONABOTULINUMTOXINA
     Indication: HEADACHE
     Route: 030

REACTIONS (15)
  - Dysphagia [None]
  - Muscle twitching [None]
  - Memory impairment [None]
  - Dysstasia [None]
  - Headache [None]
  - Neck pain [None]
  - Musculoskeletal stiffness [None]
  - Vision blurred [None]
  - Dry eye [None]
  - Hypoaesthesia [None]
  - Anxiety [None]
  - Depressed level of consciousness [None]
  - Mobility decreased [None]
  - Vomiting [None]
  - Oropharyngeal pain [None]

NARRATIVE: CASE EVENT DATE: 20150325
